FAERS Safety Report 19417845 (Version 2)
Quarter: 2021Q4

REPORT INFORMATION
  Report Type: Spontaneous
  Country: US (occurrence: US)
  Receive Date: 20210615
  Receipt Date: 20211122
  Transmission Date: 20220303
  Serious: No
  Sender: FDA-Public Use
  Company Number: US-PFIZER INC-2020405508

PATIENT
  Age: 11 Year
  Sex: Male
  Weight: 29.342 kg

DRUGS (3)
  1. GENOTROPIN [Suspect]
     Active Substance: SOMATROPIN
     Indication: Hypopituitarism
     Dosage: 1.6 MG, 1X/DAY
     Route: 058
  2. METHYLPHENIDATE [Concomitant]
     Active Substance: METHYLPHENIDATE
     Dosage: 10 MG, EXTENDED RELEASE TABLET
  3. CYPROHEPTADINE [Concomitant]
     Active Substance: CYPROHEPTADINE
     Dosage: 4 MG, ONCE DAILY

REACTIONS (5)
  - Poor quality device used [Unknown]
  - Incorrect dose administered [Unknown]
  - Device leakage [Unknown]
  - Product odour abnormal [Unknown]
  - Drug dose omission by device [Unknown]
